FAERS Safety Report 23883911 (Version 1)
Quarter: 2024Q2

REPORT INFORMATION
  Report Type: Spontaneous
  Country: US (occurrence: US)
  Receive Date: 20240522
  Receipt Date: 20240522
  Transmission Date: 20240715
  Serious: No
  Sender: FDA-Public Use
  Company Number: US-IPSEN Group, Research and Development-2024-09939

PATIENT
  Sex: Female

DRUGS (11)
  1. SOMATULINE DEPOT [Suspect]
     Active Substance: LANREOTIDE ACETATE
     Indication: Acromegaly
     Dosage: 120 MG/0.5ML, ONE SYRINGE EVERY FOUR WEEKS
     Route: 058
     Dates: start: 2012
  2. AMLODIPINE BENZOATE [Concomitant]
     Active Substance: AMLODIPINE BENZOATE
  3. SPIRONOLACTONE [Concomitant]
     Active Substance: SPIRONOLACTONE
  4. LIPITOR [Concomitant]
     Active Substance: ATORVASTATIN CALCIUM
  5. DICLOFENAC [Concomitant]
     Active Substance: DICLOFENAC
  6. CABERGOLINE [Concomitant]
     Active Substance: CABERGOLINE
  7. VISION PLUS LUTEIN VITAMIN [Concomitant]
  8. CALCIUM [Concomitant]
     Active Substance: CALCIUM
  9. ADVIL [Concomitant]
     Active Substance: IBUPROFEN
  10. VIT [Concomitant]
     Dosage: DAILY
  11. LOSARTAN [Concomitant]
     Active Substance: LOSARTAN
     Dosage: DOCTOR DISCONTINUED LOSARTIN DUE TO LOW BLOOD PRESSURE.

REACTIONS (2)
  - Fatigue [Unknown]
  - Hypotension [Unknown]
